FAERS Safety Report 13939719 (Version 1)
Quarter: 2017Q3

REPORT INFORMATION
  Report Type: Spontaneous
  Country: US (occurrence: US)
  Receive Date: 20170906
  Receipt Date: 20170906
  Transmission Date: 20171127
  Serious: Yes (Other)
  Sender: FDA-Public Use
  Company Number: None

PATIENT
  Age: 30 Year
  Sex: Male
  Weight: 108 kg

DRUGS (1)
  1. DIVALPROEX ER [Suspect]
     Active Substance: DIVALPROEX SODIUM
     Indication: SEIZURE
     Route: 048

REACTIONS (6)
  - Agitation [None]
  - Generalised tonic-clonic seizure [None]
  - Hepatic enzyme increased [None]
  - Drug level increased [None]
  - Ammonia increased [None]
  - Aggression [None]

NARRATIVE: CASE EVENT DATE: 20170825
